FAERS Safety Report 8225228-4 (Version None)
Quarter: 2012Q1

REPORT INFORMATION
  Report Type: 
  Country: None (occurrence: None)
  Receive Date: 20120321
  Receipt Date: 20120309
  Transmission Date: 20120608
  Serious: Yes (Hospitalization)
  Sender: FDA-Public Use
  Company Number: US-BRISTOL-MYERS SQUIBB COMPANY-16447351

PATIENT
  Sex: Female

DRUGS (3)
  1. WARFARIN SODIUM [Interacting]
  2. COUMADIN [Suspect]
  3. KLONOPIN [Interacting]
     Indication: ANXIETY

REACTIONS (4)
  - HAEMOGLOBIN DECREASED [None]
  - DRUG INTERACTION [None]
  - HAEMORRHAGE [None]
  - HYPOTENSION [None]
